FAERS Safety Report 14357122 (Version 2)
Quarter: 2018Q1

REPORT INFORMATION
  Report Type: Report from Study
  Country: SE (occurrence: SE)
  Receive Date: 20180105
  Receipt Date: 20180213
  Transmission Date: 20180509
  Serious: Yes (Death, Other)
  Sender: FDA-Public Use
  Company Number: SE-SHIRE-SE201736260

PATIENT
  Age: 23 Year
  Sex: Male

DRUGS (2)
  1. ELVANSE VUXEN [Suspect]
     Active Substance: LISDEXAMFETAMINE DIMESYLATE
     Indication: ATTENTION DEFICIT/HYPERACTIVITY DISORDER
     Dosage: 70 MG, UNK
     Route: 065
     Dates: start: 20161201
  2. APIXABAN [Suspect]
     Active Substance: APIXABAN
     Indication: CEREBROVASCULAR ACCIDENT PROPHYLAXIS
     Dosage: 10 MG, 1X/DAY:QD
     Route: 065

REACTIONS (3)
  - Ischaemic stroke [Fatal]
  - Haemorrhage intracranial [Fatal]
  - Hallucination, visual [Unknown]

NARRATIVE: CASE EVENT DATE: 20170501
